FAERS Safety Report 16503699 (Version 1)
Quarter: 2019Q3

REPORT INFORMATION
  Report Type: Spontaneous
  Country: US (occurrence: US)
  Receive Date: 20190701
  Receipt Date: 20190701
  Transmission Date: 20191004
  Serious: No
  Sender: FDA-Public Use
  Company Number: US-PFIZER INC-2016237520

PATIENT
  Sex: Female

DRUGS (7)
  1. ERTAPENEM. [Suspect]
     Active Substance: ERTAPENEM SODIUM
     Dosage: UNK
  2. INVANZ [Suspect]
     Active Substance: ERTAPENEM SODIUM
     Dosage: UNK
  3. KEFLEX [Suspect]
     Active Substance: CEPHALEXIN
     Dosage: UNK
  4. CLINDAMYCIN. [Suspect]
     Active Substance: CLINDAMYCIN
     Dosage: UNK
  5. PYRIDIUM [Suspect]
     Active Substance: PHENAZOPYRIDINE
     Dosage: UNK
  6. CEPHALOSPORIN NOS [Suspect]
     Active Substance: UNSPECIFIED INGREDIENT
     Dosage: UNK
  7. LACTAID [Suspect]
     Active Substance: LACTASE
     Dosage: UNK

REACTIONS (1)
  - Drug hypersensitivity [Unknown]
